FAERS Safety Report 23499632 (Version 1)
Quarter: 2024Q1

REPORT INFORMATION
  Report Type: Spontaneous
  Country: CN (occurrence: None)
  Receive Date: 20240208
  Receipt Date: 20240208
  Transmission Date: 20240410
  Serious: Yes (Hospitalization)
  Sender: FDA-Public Use
  Company Number: 2024A028135

PATIENT
  Age: 27579 Day
  Sex: Female

DRUGS (2)
  1. ESOMEPRAZOLE SODIUM [Suspect]
     Active Substance: ESOMEPRAZOLE SODIUM
     Indication: Gastritis prophylaxis
     Route: 041
     Dates: start: 20231215, end: 20231218
  2. SODIUM CHLORIDE [Concomitant]
     Active Substance: SODIUM CHLORIDE
     Indication: Gastritis prophylaxis
     Route: 041
     Dates: start: 20231215, end: 20231218

REACTIONS (5)
  - Pruritus [Recovering/Resolving]
  - Skin injury [Recovering/Resolving]
  - Blister [Recovering/Resolving]
  - Dermatitis contact [Unknown]
  - Dermatitis [Recovering/Resolving]

NARRATIVE: CASE EVENT DATE: 20231216
